FAERS Safety Report 4714714-7 (Version None)
Quarter: 2005Q3

REPORT INFORMATION
  Report Type: 
  Country: None (occurrence: None)
  Receive Date: 20050712
  Receipt Date: 20050630
  Transmission Date: 20060218
  Serious: Yes (Life-Threatening, Hospitalization)
  Sender: FDA-Public Use
  Company Number: RED/05/02/SCH

PATIENT
  Age: 59 Year
  Sex: Male
  Weight: 78 kg

DRUGS (2)
  1. REDIMUNE(IMMUNOGLOBULIN HUMAN NORMAL) [Suspect]
     Indication: NEUROPATHY
     Dosage: 30 G, MONTHLY, IV
     Route: 042
     Dates: start: 20041001
  2. PROPLEX T [Suspect]
     Indication: HAEMOPHILIA

REACTIONS (5)
  - DEEP VEIN THROMBOSIS [None]
  - DYSPNOEA [None]
  - ELECTROCARDIOGRAM REPOLARISATION ABNORMALITY [None]
  - HYPERHOMOCYSTEINAEMIA [None]
  - PULMONARY EMBOLISM [None]
